FAERS Safety Report 6771278-4 (Version None)
Quarter: 2010Q2

REPORT INFORMATION
  Report Type: 
  Country: None (occurrence: None)
  Receive Date: 20100616
  Receipt Date: 20100614
  Transmission Date: 20101027
  Serious: Yes (Death)
  Sender: FDA-Public Use
  Company Number: PHHY2010CA38550

PATIENT
  Sex: Male
  Weight: 58 kg

DRUGS (1)
  1. EXELON [Suspect]
     Dosage: UNK

REACTIONS (1)
  - CARDIOVASCULAR DISORDER [None]
